FAERS Safety Report 10014959 (Version 1)
Quarter: 2014Q1

REPORT INFORMATION
  Report Type: Spontaneous
  Country: JP (occurrence: JP)
  Receive Date: 20140317
  Receipt Date: 20140317
  Transmission Date: 20141002
  Serious: Yes (Other)
  Sender: FDA-Public Use
  Company Number: JP-PFIZER INC-2014071958

PATIENT
  Age: 74 Year
  Sex: Female

DRUGS (1)
  1. VFEND [Suspect]

REACTIONS (1)
  - Interstitial lung disease [Unknown]
